FAERS Safety Report 7240886-9 (Version None)
Quarter: 2011Q1

REPORT INFORMATION
  Report Type: 
  Country: None (occurrence: None)
  Receive Date: 20110124
  Receipt Date: 20110114
  Transmission Date: 20110831
  Serious: Yes (Other)
  Sender: FDA-Public Use
  Company Number: FR-BAXTER-2011BH001334

PATIENT
  Age: 92 Year
  Sex: Male

DRUGS (6)
  1. MABTHERA [Concomitant]
     Indication: COLD TYPE HAEMOLYTIC ANAEMIA
  2. GAMMAGARD S/D [Suspect]
     Indication: WALDENSTROM'S MACROGLOBULINAEMIA
     Route: 042
     Dates: start: 20110106, end: 20110106
  3. GAMMAGARD S/D [Suspect]
     Indication: COLD TYPE HAEMOLYTIC ANAEMIA
     Route: 042
     Dates: start: 20110106, end: 20110106
  4. GAMMAGARD S/D [Suspect]
     Route: 042
     Dates: start: 20110106, end: 20110106
  5. MABTHERA [Concomitant]
     Indication: WALDENSTROM'S MACROGLOBULINAEMIA
  6. GAMMAGARD S/D [Suspect]
     Route: 042
     Dates: start: 20110106, end: 20110106

REACTIONS (1)
  - RASH [None]
